FAERS Safety Report 8213034-6 (Version None)
Quarter: 2012Q1

REPORT INFORMATION
  Report Type: 
  Country: None (occurrence: None)
  Receive Date: 20120315
  Receipt Date: 20120306
  Transmission Date: 20120608
  Serious: Yes (Other)
  Sender: FDA-Public Use
  Company Number: US-JNJFOC-20120304736

PATIENT
  Sex: Male
  Weight: 65.77 kg

DRUGS (5)
  1. DURAGESIC-100 [Suspect]
     Indication: SPINAL FRACTURE
     Route: 062
     Dates: start: 20070101, end: 20090101
  2. DURAGESIC-100 [Suspect]
     Route: 062
     Dates: start: 20090101
  3. DURAGESIC-100 [Suspect]
     Route: 062
  4. PHENOBARBITAL TAB [Concomitant]
     Indication: CONVULSION
     Route: 048
     Dates: start: 20070101
  5. DILAUDID [Concomitant]
     Indication: PAIN
     Route: 048
     Dates: start: 20090101

REACTIONS (3)
  - CONVULSION [None]
  - WITHDRAWAL SYNDROME [None]
  - FOOT FRACTURE [None]
